FAERS Safety Report 7221124-X (Version None)
Quarter: 2011Q1

REPORT INFORMATION
  Report Type: 
  Country: None (occurrence: None)
  Receive Date: 20110112
  Receipt Date: 20110106
  Transmission Date: 20110831
  Serious: No
  Sender: FDA-Public Use
  Company Number: US-PFIZER INC-2011004665

PATIENT
  Age: 89 Year
  Sex: Male
  Weight: 79.365 kg

DRUGS (2)
  1. ADVIL [Suspect]
     Indication: HEADACHE
  2. ADVIL [Suspect]
     Indication: BACK PAIN
     Dosage: 2 CAPLETS, PRN
     Route: 048
     Dates: start: 20101201

REACTIONS (1)
  - DRUG INEFFECTIVE [None]
